FAERS Safety Report 11751916 (Version 1)
Quarter: 2015Q4

REPORT INFORMATION
  Report Type: Spontaneous
  Country: CN (occurrence: CN)
  Receive Date: 20151118
  Receipt Date: 20151118
  Transmission Date: 20160304
  Serious: Yes (Death, Other)
  Sender: FDA-Public Use
  Company Number: CN-MYLANLABS-2015M1040179

PATIENT

DRUGS (6)
  1. METHADONE [Suspect]
     Active Substance: METHADONE HYDROCHLORIDE
     Indication: CANCER PAIN
     Route: 065
  2. MORPHINE [Concomitant]
     Active Substance: MORPHINE
     Indication: CANCER PAIN
     Dosage: 60MG DAILY
     Route: 048
  3. FENTANYL. [Suspect]
     Active Substance: FENTANYL
     Indication: CANCER PAIN
     Route: 065
  4. KETAMINE [Suspect]
     Active Substance: KETAMINE
     Dosage: 200MG DAILY ESCALATION DOSE
     Route: 041
  5. KETAMINE [Suspect]
     Active Substance: KETAMINE
     Indication: CANCER PAIN
     Dosage: 100MG OVER 24 HOURS
     Route: 041
  6. PREGABALIN. [Concomitant]
     Active Substance: PREGABALIN
     Indication: CANCER PAIN
     Route: 065

REACTIONS (3)
  - Somnolence [Recovered/Resolved]
  - Off label use [Recovered/Resolved]
  - Pneumonia [Fatal]
